FAERS Safety Report 8297148-0 (Version None)
Quarter: 2012Q2

REPORT INFORMATION
  Report Type: 
  Country: None (occurrence: None)
  Receive Date: 20120419
  Receipt Date: 20120416
  Transmission Date: 20120825
  Serious: No
  Sender: FDA-Public Use
  Company Number: US-PFIZER INC-2012095027

PATIENT
  Sex: Female
  Weight: 67.12 kg

DRUGS (8)
  1. ESTRADIOL [Suspect]
     Indication: OVARIAN CYST RUPTURED
     Dosage: 1 MG, DAILY
     Dates: start: 20120319
  2. METOPROLOL [Concomitant]
     Indication: HYPERTENSION
     Dosage: 25 MG, DAILY
  3. SIMVASTATIN [Concomitant]
     Indication: BLOOD CHOLESTEROL INCREASED
     Dosage: 80 MG, DAILY
  4. VITAMIN TAB [Concomitant]
     Dosage: UNK
  5. ZOLPIDEM [Concomitant]
     Indication: SLEEP DISORDER
     Dosage: 10 MG, DAILY
  6. FIBERCON [Concomitant]
     Dosage: UNK
  7. ACETYLSALICYLIC ACID [Concomitant]
     Dosage: 81 MG, UNK
  8. FENOFIBRATE [Concomitant]
     Dosage: 48 MG, DAILY

REACTIONS (4)
  - ABDOMINAL DISCOMFORT [None]
  - NIGHT SWEATS [None]
  - SINUSITIS [None]
  - HOT FLUSH [None]
